FAERS Safety Report 5043418-9 (Version None)
Quarter: 2006Q2

REPORT INFORMATION
  Report Type: 
  Country: None (occurrence: None)
  Receive Date: 20060629
  Receipt Date: 20060620
  Transmission Date: 20061013
  Serious: Yes (Hospitalization)
  Sender: FDA-Public Use
  Company Number: 2006-06-0414

PATIENT
  Age: 71 Year
  Sex: Male
  Weight: 57 kg

DRUGS (5)
  1. PEG-INTRON [Suspect]
     Indication: HEPATITIS C
     Dosage: 100-80* MCG QW SUBCUTANEOUS
     Route: 058
     Dates: start: 20050509, end: 20051011
  2. PEG-INTRON [Suspect]
     Indication: HEPATITIS C
     Dosage: 100-80* MCG QW SUBCUTANEOUS
     Route: 058
     Dates: start: 20050509, end: 20060511
  3. PEG-INTRON [Suspect]
     Indication: HEPATITIS C
     Dosage: 100-80* MCG QW SUBCUTANEOUS
     Route: 058
     Dates: start: 20051018, end: 20060511
  4. REBETOL [Suspect]
     Indication: HEPATITIS C
     Dosage: 600 MG ORAL
     Route: 048
     Dates: start: 20050509, end: 20060516
  5. EPADEL (ETHYL ICOSAPENTATE) CAPSULES [Concomitant]

REACTIONS (3)
  - CERVICAL GLAND TUBERCULOSIS [None]
  - DISEASE RECURRENCE [None]
  - PULMONARY TUBERCULOSIS [None]
